FAERS Safety Report 9985507 (Version 2)
Quarter: 2014Q2

REPORT INFORMATION
  Report Type: Spontaneous
  Country: FR (occurrence: FR)
  Receive Date: 20140307
  Receipt Date: 20140416
  Transmission Date: 20141212
  Serious: Yes (Hospitalization, Other)
  Sender: FDA-Public Use
  Company Number: FR-AMGEN-FRASP2014015487

PATIENT
  Age: 72 Year
  Sex: Female
  Weight: 52 kg

DRUGS (10)
  1. MIMPARA [Suspect]
     Indication: HYPERPARATHYROIDISM PRIMARY
     Dosage: 30 MG, 2 TAB/DAY
     Route: 048
     Dates: start: 20131115
  2. HALDOL                             /00027401/ [Concomitant]
     Indication: DEPRESSION
     Route: 065
  3. TIAPRIDAL                          /00435701/ [Concomitant]
  4. LEVOTHYROX [Concomitant]
     Indication: THYROID NEOPLASM
     Route: 065
  5. UVEDOSE [Concomitant]
     Dosage: UNK UNK, Q3MO
     Route: 065
  6. SERESTA [Concomitant]
     Dosage: 10 MG, TID
  7. IMOVANE [Concomitant]
     Dosage: 7.5, 1/2 AT BED TIME
  8. TRANSIPEG                          /00754501/ [Concomitant]
     Dosage: UNK UNK, BID
  9. FRESUBIN                           /07459901/ [Concomitant]
     Dosage: UNK UNK, QD
  10. RENUTRYL [Concomitant]
     Dosage: UNK UNK, QD

REACTIONS (16)
  - Frontotemporal dementia [Unknown]
  - Normal pressure hydrocephalus [Unknown]
  - Delusion [Unknown]
  - Hypertension [Unknown]
  - Weight decreased [Unknown]
  - Abdominal pain [Unknown]
  - Constipation [Unknown]
  - Speech disorder [Unknown]
  - Arthralgia [Unknown]
  - Adverse event [Unknown]
  - Lacrimation increased [Unknown]
  - Cataract [Unknown]
  - Osteoarthritis [Unknown]
  - Hernia [Unknown]
  - Osteoporosis [Unknown]
  - Myalgia [Unknown]
